FAERS Safety Report 4731199-5 (Version None)
Quarter: 2005Q3

REPORT INFORMATION
  Report Type: 
  Country: None (occurrence: None)
  Receive Date: 20050729
  Receipt Date: 20050714
  Transmission Date: 20060218
  Serious: Yes (Hospitalization)
  Sender: FDA-Public Use
  Company Number: 2005S1006224

PATIENT
  Age: 75 Year
  Sex: Male

DRUGS (1)
  1. FENTANYL [Suspect]
     Indication: CANCER PAIN
     Dosage: 75 MCG/HR; QOD; TDER
     Route: 062
     Dates: start: 20050627, end: 20050713

REACTIONS (5)
  - ASTHENIA [None]
  - DRUG WITHDRAWAL SYNDROME [None]
  - DYSKINESIA [None]
  - PAIN [None]
  - THERAPEUTIC RESPONSE UNEXPECTED WITH DRUG SUBSTITUTION [None]
